FAERS Safety Report 4991249-8 (Version None)
Quarter: 2006Q2

REPORT INFORMATION
  Report Type: 
  Country: None (occurrence: None)
  Receive Date: 20060428
  Receipt Date: 20060413
  Transmission Date: 20061013
  Serious: Yes (Hospitalization, Other)
  Sender: FDA-Public Use
  Company Number: 8016364

PATIENT
  Age: 22 Year
  Sex: Female

DRUGS (2)
  1. KEPPRA [Suspect]
     Dosage: PO
     Route: 048
  2. LAMICTAL [Suspect]

REACTIONS (1)
  - APLASTIC ANAEMIA [None]
